FAERS Safety Report 11765612 (Version 1)
Quarter: 2015Q4

REPORT INFORMATION
  Report Type: Spontaneous
  Country: US (occurrence: US)
  Receive Date: 20151120
  Receipt Date: 20151120
  Transmission Date: 20160304
  Serious: No
  Sender: FDA-Public Use
  Company Number: US-ELI_LILLY_AND_COMPANY-US201406009072

PATIENT
  Sex: Female

DRUGS (5)
  1. DIGOXIN. [Concomitant]
     Active Substance: DIGOXIN
  2. FORTEO [Suspect]
     Active Substance: TERIPARATIDE
     Indication: OSTEOPOROSIS
     Dosage: 20 UG, QD
     Route: 065
     Dates: start: 201309, end: 201406
  3. WARFARIN [Concomitant]
     Active Substance: WARFARIN
  4. NIMODIPINE. [Concomitant]
     Active Substance: NIMODIPINE
  5. ATENOLOL. [Concomitant]
     Active Substance: ATENOLOL

REACTIONS (3)
  - Urinary tract infection [Unknown]
  - Incorrect product storage [Unknown]
  - Sinusitis [Unknown]
